FAERS Safety Report 6814001-7 (Version None)
Quarter: 2010Q3

REPORT INFORMATION
  Report Type: 
  Country: None (occurrence: None)
  Receive Date: 20100702
  Receipt Date: 20100629
  Transmission Date: 20110219
  Serious: Yes (Hospitalization, Other)
  Sender: FDA-Public Use
  Company Number: US-ASTRAZENECA-2007UW06362

PATIENT
  Age: 29 Year
  Sex: Female
  Weight: 124.3 kg

DRUGS (60)
  1. SEROQUEL [Suspect]
     Indication: AFFECTIVE DISORDER
     Dosage: 25 MG TO 200 MG
     Route: 048
     Dates: start: 20011226
  2. SEROQUEL [Suspect]
     Indication: PSYCHOTIC DISORDER
     Dosage: 25 MG TO 200 MG
     Route: 048
     Dates: start: 20011226
  3. SEROQUEL [Suspect]
     Indication: AGITATION
     Dosage: 25 MG TO 200 MG
     Route: 048
     Dates: start: 20011226
  4. SEROQUEL [Suspect]
     Dosage: 25 MG TO 200 MG
     Route: 048
     Dates: start: 20030901, end: 20060101
  5. SEROQUEL [Suspect]
     Dosage: 25 MG TO 200 MG
     Route: 048
     Dates: start: 20030901, end: 20060101
  6. SEROQUEL [Suspect]
     Dosage: 25 MG TO 200 MG
     Route: 048
     Dates: start: 20030901, end: 20060101
  7. SEROQUEL [Suspect]
     Dosage: 200 MG BID AND 600 MG AT NIGHT
     Route: 048
     Dates: start: 20041029
  8. SEROQUEL [Suspect]
     Dosage: 200 MG BID AND 600 MG AT NIGHT
     Route: 048
     Dates: start: 20041029
  9. SEROQUEL [Suspect]
     Dosage: 200 MG BID AND 600 MG AT NIGHT
     Route: 048
     Dates: start: 20041029
  10. SEROQUEL [Suspect]
     Dosage: 25 MG,100 MG(DISPENSED)
     Route: 048
     Dates: start: 20061014
  11. SEROQUEL [Suspect]
     Dosage: 25 MG,100 MG(DISPENSED)
     Route: 048
     Dates: start: 20061014
  12. SEROQUEL [Suspect]
     Dosage: 25 MG,100 MG(DISPENSED)
     Route: 048
     Dates: start: 20061014
  13. SEROQUEL [Suspect]
     Route: 048
     Dates: start: 20070101
  14. SEROQUEL [Suspect]
     Route: 048
     Dates: start: 20070101
  15. SEROQUEL [Suspect]
     Route: 048
     Dates: start: 20070101
  16. SEROQUEL [Suspect]
     Route: 048
     Dates: start: 20100101
  17. SEROQUEL [Suspect]
     Route: 048
     Dates: start: 20100101
  18. SEROQUEL [Suspect]
     Route: 048
     Dates: start: 20100101
  19. SEROQUEL [Suspect]
     Dosage: 200 MG AT NIGHT,50 MG TID PRN
     Route: 048
     Dates: start: 20070831
  20. SEROQUEL [Suspect]
     Dosage: 200 MG AT NIGHT,50 MG TID PRN
     Route: 048
     Dates: start: 20070831
  21. SEROQUEL [Suspect]
     Dosage: 200 MG AT NIGHT,50 MG TID PRN
     Route: 048
     Dates: start: 20070831
  22. RISPERDAL [Concomitant]
     Dosage: 0.5 MG TO 1 MG
     Dates: start: 20030901
  23. ZYPREXA [Concomitant]
     Dates: start: 20060101
  24. ABILIFY [Concomitant]
     Dates: start: 20030101
  25. ABILIFY [Concomitant]
     Dates: start: 20041029
  26. GEODON [Concomitant]
     Dates: start: 20070101
  27. HALDOL [Concomitant]
     Dates: start: 20070101
  28. TRILAFON [Concomitant]
     Dates: start: 20070101
  29. TRAZODONE HYDROCHLORIDE [Concomitant]
     Dates: start: 20041029
  30. TRAZODONE HYDROCHLORIDE [Concomitant]
     Dates: start: 20070101
  31. TRAZODONE HYDROCHLORIDE [Concomitant]
     Dates: start: 20070831
  32. EFFEXOR [Concomitant]
     Dates: start: 20070101
  33. EFFEXOR [Concomitant]
     Dates: start: 20070831
  34. WELLBUTRIN [Concomitant]
     Dates: start: 20041029
  35. AMBIEN [Concomitant]
  36. SINGULAIR [Concomitant]
     Dates: start: 20060328
  37. SINGULAIR [Concomitant]
     Route: 048
     Dates: start: 20060921
  38. SINGULAIR [Concomitant]
     Dates: start: 20070101
  39. SINGULAIR [Concomitant]
     Dates: start: 20041029
  40. CELEXA [Concomitant]
     Dosage: 10 MG TO 40 MG
     Route: 048
     Dates: start: 20010915
  41. CLONAZEPAM [Concomitant]
     Route: 048
     Dates: start: 20010915
  42. ALLEGRA [Concomitant]
     Route: 048
     Dates: start: 20011226
  43. PREVACID [Concomitant]
     Route: 048
     Dates: start: 20011226
  44. PREVACID [Concomitant]
     Dates: start: 20041029
  45. LAMICTAL [Concomitant]
     Route: 048
     Dates: start: 20020110
  46. TOPAMAX [Concomitant]
     Route: 048
     Dates: start: 20021004
  47. DEPAKOTE [Concomitant]
     Route: 048
     Dates: start: 20040402
  48. METFORMIN HCL [Concomitant]
     Dates: start: 20070101
  49. ACTOS [Concomitant]
     Dates: start: 20070725
  50. ATENOLOL [Concomitant]
     Dates: start: 20070725
  51. LISINOPRIL [Concomitant]
     Dates: start: 20070725
  52. COLESTID [Concomitant]
     Dates: start: 20070725
  53. MIRTAZAPINE [Concomitant]
     Dates: start: 20070725
  54. MECLIZINE [Concomitant]
     Dates: start: 20070725
  55. ALBUTEROL [Concomitant]
     Dosage: PRN
     Dates: start: 20070101
  56. BUSPAR [Concomitant]
     Dates: start: 20070101
  57. PERCOCET [Concomitant]
     Dosage: PRN
     Dates: start: 20070101
  58. CLARITIN [Concomitant]
     Dates: start: 20041029
  59. TRILEPTAL [Concomitant]
  60. ADVAIR DISKUS 100/50 [Concomitant]

REACTIONS (7)
  - BLOOD CHOLESTEROL INCREASED [None]
  - BLOOD TRIGLYCERIDES INCREASED [None]
  - DIABETIC NEUROPATHY [None]
  - MULTIPLE DRUG OVERDOSE INTENTIONAL [None]
  - SUICIDAL IDEATION [None]
  - SUICIDE ATTEMPT [None]
  - TYPE 2 DIABETES MELLITUS [None]
